FAERS Safety Report 7068410-4 (Version None)
Quarter: 2010Q4

REPORT INFORMATION
  Report Type: 
  Country: None (occurrence: None)
  Receive Date: 20101028
  Receipt Date: 20101019
  Transmission Date: 20110411
  Serious: Yes (Other)
  Sender: FDA-Public Use
  Company Number: B0677251A

PATIENT
  Age: 24 Year
  Sex: Female

DRUGS (6)
  1. ZOVIRAX [Suspect]
     Indication: HERPES ZOSTER
     Dosage: 250MG PER DAY
     Route: 048
     Dates: start: 20091203, end: 20091224
  2. METHYLPREDNISOLONE [Concomitant]
     Route: 065
  3. IMMUNE GLOBULIN INTRAVENOUS (HUMAN) [Concomitant]
     Route: 042
  4. ETOPOSIDE [Concomitant]
     Route: 065
  5. CYCLOSPORINE [Concomitant]
     Route: 065
  6. DEXAMETHASONE [Concomitant]
     Route: 065

REACTIONS (3)
  - ABORTION SPONTANEOUS [None]
  - DRUG EXPOSURE DURING PREGNANCY [None]
  - INTRA-UTERINE DEATH [None]
